FAERS Safety Report 4700261-5 (Version None)
Quarter: 2005Q2

REPORT INFORMATION
  Report Type: 
  Country: None (occurrence: None)
  Receive Date: 20050209
  Receipt Date: 20050209
  Transmission Date: 20051028
  Serious: Yes (Other)
  Sender: FDA-Public Use
  Company Number: None

PATIENT
  Age: 18 Year
  Sex: Female
  Weight: 61.2356 kg

DRUGS (2)
  1. PRIMIDONE [Suspect]
     Indication: CONVULSION
     Dosage: 250MG ONE BID
     Dates: start: 20041016, end: 20041017
  2. PRIMIDONE [Suspect]
     Indication: EPILEPSY
     Dosage: 250MG ONE BID
     Dates: start: 20041016, end: 20041017

REACTIONS (2)
  - GRAND MAL CONVULSION [None]
  - THERAPEUTIC RESPONSE UNEXPECTED WITH DRUG SUBSTITUTION [None]
